FAERS Safety Report 11855377 (Version 1)
Quarter: 2015Q4

REPORT INFORMATION
  Report Type: Spontaneous
  Country: US (occurrence: US)
  Receive Date: 20151221
  Receipt Date: 20151221
  Transmission Date: 20160305
  Serious: Yes (Other)
  Sender: FDA-Public Use
  Company Number: US-MYLANLABS-2015M1045728

PATIENT

DRUGS (1)
  1. PACLITAXEL. [Suspect]
     Active Substance: PACLITAXEL
     Indication: BREAST CANCER STAGE IV
     Dosage: 150MG/M2 WEEKLY; D1, 8, 15 OF 28D CYCLE; SIX DOSES TOTAL
     Route: 042

REACTIONS (4)
  - Hypersensitivity [Recovered/Resolved]
  - Fatigue [Unknown]
  - Erythema [Recovered/Resolved]
  - Onycholysis [Recovered/Resolved]
